FAERS Safety Report 4950471-7 (Version None)
Quarter: 2006Q1

REPORT INFORMATION
  Report Type: 
  Country: None (occurrence: None)
  Receive Date: 20060322
  Receipt Date: 20050803
  Transmission Date: 20060701
  Serious: Yes (Other)
  Sender: FDA-Public Use
  Company Number: US-GLAXOSMITHKLINE-A0568807A

PATIENT
  Age: 73 Year
  Sex: Female

DRUGS (9)
  1. AVANDIA [Suspect]
     Dosage: 4MG PER DAY
     Route: 048
  2. AMARYL [Concomitant]
  3. GLUCOPHAGE [Concomitant]
  4. WELCHOL [Concomitant]
  5. TRICOR [Concomitant]
  6. ALBUTEROL [Concomitant]
  7. ATROVENT [Concomitant]
  8. ACIPHEX [Concomitant]
  9. ASPIRIN [Concomitant]

REACTIONS (6)
  - ASTHENIA [None]
  - CARDIAC FLUTTER [None]
  - DRY MOUTH [None]
  - HYPERHIDROSIS [None]
  - PALPITATIONS [None]
  - SUPRAVENTRICULAR TACHYCARDIA [None]
